FAERS Safety Report 4920385-7 (Version None)
Quarter: 2006Q1

REPORT INFORMATION
  Report Type: 
  Country: None (occurrence: None)
  Receive Date: 20060216
  Receipt Date: 20060206
  Transmission Date: 20060701
  Serious: Yes (Other)
  Sender: FDA-Public Use
  Company Number: 2006019671

PATIENT
  Age: 37 Year
  Sex: Female

DRUGS (13)
  1. VFEND [Suspect]
     Indication: FUNGAL INFECTION
     Dosage: 800 MG (200 MG) ORAL
     Route: 048
     Dates: start: 20050103, end: 20050106
  2. GANCICLOVIR SODIUM [Suspect]
     Indication: CYTOMEGALOVIRUS INFECTION
     Dosage: 850 MG
     Dates: start: 20050104, end: 20050105
  3. SANDIMMUNE [Suspect]
     Indication: HODGKIN'S DISEASE
     Dates: end: 20050115
  4. MABTHERA (RITUXIMAB) [Suspect]
     Indication: VIRAL INFECTION
     Dosage: 100 MG
     Dates: start: 20050105, end: 20050111
  5. SOLU-CORTEF [Concomitant]
  6. TAVEGYL (CLEMASTINE) [Concomitant]
  7. PREDNISOLONE [Concomitant]
  8. MYCOSTATIN [Concomitant]
  9. FUROSEMIDE [Concomitant]
  10. ALVEDON (PARACETAMOL) [Concomitant]
  11. MERONEM (MEROPENEM) [Concomitant]
  12. OMEPRAZOLE [Concomitant]
  13. URSO FALK [Concomitant]

REACTIONS (10)
  - BRONCHOSPASM [None]
  - CHOLESTASIS [None]
  - CONFUSIONAL STATE [None]
  - DEPRESSED LEVEL OF CONSCIOUSNESS [None]
  - HALLUCINATION [None]
  - HYPOTENSION [None]
  - LYMPHADENOPATHY [None]
  - MULTI-ORGAN FAILURE [None]
  - RENAL FAILURE [None]
  - VIRAL DNA TEST POSITIVE [None]
